FAERS Safety Report 11672845 (Version 1)
Quarter: 2015Q4

REPORT INFORMATION
  Report Type: Spontaneous
  Country: US (occurrence: US)
  Receive Date: 20151027
  Receipt Date: 20151027
  Transmission Date: 20160304
  Serious: No
  Sender: FDA-Public Use
  Company Number: US-ELI_LILLY_AND_COMPANY-US201007001616

PATIENT
  Sex: Male

DRUGS (7)
  1. AMIODURA [Concomitant]
     Dosage: 200 MG, UNKNOWN
  2. WARFARIN [Concomitant]
     Active Substance: WARFARIN
  3. DIGOXIN. [Concomitant]
     Active Substance: DIGOXIN
  4. FLOMAX [Concomitant]
     Active Substance: TAMSULOSIN HYDROCHLORIDE
  5. DILTIAZEM HYDROCHLORIDE EXTENDED RELEASE [Concomitant]
     Active Substance: DILTIAZEM HYDROCHLORIDE
     Dosage: 120 MG, UNKNOWN
  6. VITAMINS NOS [Concomitant]
     Active Substance: VITAMINS
  7. FORTEO [Suspect]
     Active Substance: TERIPARATIDE
     Indication: OSTEOPOROSIS
     Dosage: 20 UG, DAILY (1/D)
     Dates: start: 20100628

REACTIONS (4)
  - Malaise [Unknown]
  - Asthenia [Unknown]
  - Injection site discomfort [Unknown]
  - Abdominal discomfort [Unknown]
